FAERS Safety Report 4761353-8 (Version None)
Quarter: 2005Q3

REPORT INFORMATION
  Report Type: 
  Country: None (occurrence: None)
  Receive Date: 20050901
  Receipt Date: 20050818
  Transmission Date: 20060218
  Serious: Yes (Disabling)
  Sender: FDA-Public Use
  Company Number: 2005-131854-NL

PATIENT
  Age: 43 Year
  Sex: Female

DRUGS (8)
  1. VECURONIUM BROMIDE [Suspect]
     Indication: INDUCTION OF ANAESTHESIA
     Dosage: 5 MG ONCE, INTRAVENOUS NOS
     Route: 042
     Dates: start: 20000701
  2. HYDROXYZINE [Concomitant]
  3. ATROPINE [Concomitant]
  4. PROPOFOL [Concomitant]
  5. NITROUS OXIDE [Concomitant]
  6. OXYGEN [Concomitant]
  7. SEVOFLURANE [Concomitant]
  8. BUPIVACAINE [Concomitant]

REACTIONS (4)
  - ABASIA [None]
  - FEMORAL NERVE PALSY [None]
  - HYPOAESTHESIA [None]
  - POST PROCEDURAL COMPLICATION [None]
